FAERS Safety Report 5124706-4 (Version None)
Quarter: 2006Q4

REPORT INFORMATION
  Report Type: 
  Country: None (occurrence: None)
  Receive Date: 20061006
  Receipt Date: 20061006
  Transmission Date: 20070319
  Serious: No
  Sender: FDA-Public Use
  Company Number: None

PATIENT
  Age: 45 Year
  Sex: Female
  Weight: 54.4316 kg

DRUGS (2)
  1. CIPRO [Suspect]
     Indication: VAGINITIS BACTERIAL
     Dates: start: 20030301
  2. FLAGYL [Suspect]
     Indication: DIARRHOEA

REACTIONS (4)
  - BACK PAIN [None]
  - BONE PAIN [None]
  - PARAESTHESIA [None]
  - PATHOGEN RESISTANCE [None]
